FAERS Safety Report 13815940 (Version 1)
Quarter: 2017Q3

REPORT INFORMATION
  Report Type: Spontaneous
  Country: US (occurrence: US)
  Receive Date: 20170731
  Receipt Date: 20170731
  Transmission Date: 20171127
  Serious: No
  Sender: FDA-Public Use
  Company Number: US-SA-2016SA140416

PATIENT
  Sex: Male

DRUGS (3)
  1. LUNESTA [Suspect]
     Active Substance: ESZOPICLONE
     Route: 065
  2. RESTORIL [Suspect]
     Active Substance: TEMAZEPAM
     Route: 065
  3. AMBIEN [Suspect]
     Active Substance: ZOLPIDEM TARTRATE
     Route: 048

REACTIONS (4)
  - Middle insomnia [Unknown]
  - Psychomotor hyperactivity [Unknown]
  - Drug ineffective [Unknown]
  - Energy increased [Unknown]
